FAERS Safety Report 23667545 (Version 1)
Quarter: 2024Q1

REPORT INFORMATION
  Report Type: Other
  Country: CN (occurrence: CN)
  Receive Date: 20240325
  Receipt Date: 20240325
  Transmission Date: 20240410
  Serious: Yes (Other)
  Sender: FDA-Public Use
  Company Number: CN-Appco Pharma LLC-2154773

PATIENT
  Age: 77 Year
  Sex: Female

DRUGS (7)
  1. HYDROXYCHLOROQUINE SULFATE [Suspect]
     Active Substance: HYDROXYCHLOROQUINE SULFATE
     Indication: Pancreatic carcinoma metastatic
     Route: 065
  2. GEMCITABINE [Suspect]
     Active Substance: GEMCITABINE
     Route: 065
  3. TRAMETINIB [Suspect]
     Active Substance: TRAMETINIB
     Route: 065
  4. PACLITAXEL [Suspect]
     Active Substance: PACLITAXEL
     Route: 065
  5. TEGAFUR [Suspect]
     Active Substance: TEGAFUR
     Route: 065
  6. OTERACIL [Suspect]
     Active Substance: OTERACIL
     Route: 065
  7. GIMERACIL [Suspect]
     Active Substance: GIMERACIL
     Route: 065

REACTIONS (1)
  - Drug ineffective [Unknown]
